FAERS Safety Report 6081042-X (Version None)
Quarter: 2009Q1

REPORT INFORMATION
  Report Type: 
  Country: None (occurrence: None)
  Receive Date: 20090217
  Receipt Date: 20090204
  Transmission Date: 20090719
  Serious: Yes (Hospitalization, Other)
  Sender: FDA-Public Use
  Company Number: PHHO2007MX14959

PATIENT
  Sex: Female

DRUGS (2)
  1. DIOVAN [Suspect]
     Dosage: 80 MG, QD
     Route: 048
     Dates: start: 20030101
  2. DIOVAN [Suspect]
     Dosage: 320 MG, UNK
     Route: 048

REACTIONS (4)
  - CARDIAC DISORDER [None]
  - HAEMORRHOID OPERATION [None]
  - HAEMORRHOIDS [None]
  - HYPERTENSIVE CRISIS [None]
